FAERS Safety Report 19998553 (Version 1)
Quarter: 2021Q4

REPORT INFORMATION
  Report Type: Spontaneous
  Country: GB (occurrence: GB)
  Receive Date: 20211027
  Receipt Date: 20211027
  Transmission Date: 20220303
  Serious: Yes (Death, Other)
  Sender: FDA-Public Use
  Company Number: None

PATIENT
  Age: 75 Year
  Sex: Female
  Weight: 87 kg

DRUGS (11)
  1. VENLAFAXINE [Interacting]
     Active Substance: VENLAFAXINE HYDROCHLORIDE
  2. CLOZAPINE [Interacting]
     Active Substance: CLOZAPINE
     Indication: Schizophrenia
     Route: 048
     Dates: start: 20090202, end: 20200719
  3. AMISULPRIDE [Concomitant]
     Active Substance: AMISULPRIDE
  4. CIPROFLOXACIN [Concomitant]
     Active Substance: CIPROFLOXACIN
  5. PENTASA [Concomitant]
     Active Substance: MESALAMINE
  6. PIOGLITAZONE [Concomitant]
     Active Substance: PIOGLITAZONE
  7. SIMVASTATIN [Concomitant]
     Active Substance: SIMVASTATIN
  8. SENNA [Concomitant]
     Active Substance: SENNA LEAF\SENNOSIDES\SENNOSIDES A AND B
  9. TROSPIUM CHLORIDE [Concomitant]
     Active Substance: TROSPIUM CHLORIDE
  10. DAPAGLIFLOZIN [Concomitant]
     Active Substance: DAPAGLIFLOZIN
  11. SITAGLIPTIN [Concomitant]
     Active Substance: SITAGLIPTIN

REACTIONS (13)
  - Toxicity to various agents [Fatal]
  - Postmortem blood drug level increased [Fatal]
  - Upper airway obstruction [Fatal]
  - Hydronephrosis [Fatal]
  - Emphysema [Fatal]
  - Arteriosclerosis coronary artery [Not Recovered/Not Resolved]
  - Arteriosclerosis [Not Recovered/Not Resolved]
  - Cholelithiasis [Not Recovered/Not Resolved]
  - Kidney fibrosis [Not Recovered/Not Resolved]
  - Bladder trabeculation [Not Recovered/Not Resolved]
  - Urinary tract infection [Not Recovered/Not Resolved]
  - Portal fibrosis [Fatal]
  - Drug interaction [Fatal]
